FAERS Safety Report 24463331 (Version 1)
Quarter: 2024Q4

REPORT INFORMATION
  Report Type: Report from Study
  Country: US (occurrence: US)
  Receive Date: 20241018
  Receipt Date: 20241018
  Transmission Date: 20250115
  Serious: No
  Sender: ROCHE
  Company Number: US-ROCHE-3295725

PATIENT
  Age: 71 Year
  Sex: Female
  Weight: 56.2 kg

DRUGS (9)
  1. XOLAIR [Suspect]
     Active Substance: OMALIZUMAB
     Indication: Asthma
     Route: 058
     Dates: start: 20220222
  2. XOLAIR [Suspect]
     Active Substance: OMALIZUMAB
  3. FOSAMAX [Concomitant]
     Active Substance: ALENDRONATE SODIUM
  4. ASPIRIN [Concomitant]
     Active Substance: ASPIRIN
  5. CALCIUM [Concomitant]
     Active Substance: CALCIUM
  6. ANAFRANIL [Concomitant]
     Active Substance: CLOMIPRAMINE HYDROCHLORIDE
  7. VITAMIN B12 [Concomitant]
     Active Substance: CYANOCOBALAMIN
  8. FLAXSEED OIL OMEGA 3 [Concomitant]
  9. LUTEIN [Concomitant]
     Active Substance: LUTEIN

REACTIONS (2)
  - Off label use [Unknown]
  - No adverse event [Unknown]
